FAERS Safety Report 11335671 (Version 2)
Quarter: 2015Q3

REPORT INFORMATION
  Report Type: Spontaneous
  Country: BR (occurrence: BR)
  Receive Date: 20150804
  Receipt Date: 20150812
  Transmission Date: 20151125
  Serious: Yes (Other)
  Sender: FDA-Public Use
  Company Number: BR-PFIZER INC-2015253092

PATIENT
  Age: 58 Year
  Sex: Female
  Weight: 69 kg

DRUGS (1)
  1. FRONTAL [Suspect]
     Active Substance: ALPRAZOLAM
     Indication: SLEEP DISORDER
     Dosage: 2 TABLETS OF 1MG A DAY
     Route: 048
     Dates: start: 2005

REACTIONS (5)
  - Hypertension [Unknown]
  - Gastrointestinal disorder [Unknown]
  - Cardiac disorder [Unknown]
  - Infarction [Recovered/Resolved]
  - Blood cholesterol increased [Unknown]

NARRATIVE: CASE EVENT DATE: 2011
